FAERS Safety Report 14074328 (Version 1)
Quarter: 2017Q4

REPORT INFORMATION
  Report Type: Spontaneous
  Country: US (occurrence: US)
  Receive Date: 20171010
  Receipt Date: 20171010
  Transmission Date: 20180321
  Serious: Yes (Other)
  Sender: FDA-Public Use
  Company Number: US-BAYER-2017-191240

PATIENT
  Age: 38 Year
  Sex: Male

DRUGS (3)
  1. BAYER ASPIRIN [Suspect]
     Active Substance: ASPIRIN
     Indication: THROMBOSIS
     Dosage: 81 MG, UNK
     Route: 048
     Dates: start: 2015
  2. BAYER ASPIRIN [Suspect]
     Active Substance: ASPIRIN
     Indication: THROMBOSIS
     Dosage: 81 MG, UNK
     Route: 048
     Dates: start: 201706
  3. METFORMIN HYDROCHLORIDE. [Concomitant]
     Active Substance: METFORMIN HYDROCHLORIDE
     Dosage: UNK

REACTIONS (8)
  - Toxicity to various agents [Unknown]
  - Thrombosis [Unknown]
  - Neuropathy peripheral [Recovering/Resolving]
  - Fatigue [Recovered/Resolved]
  - Metastases to lymph nodes [Unknown]
  - Gait inability [Recovered/Resolved]
  - Palmar-plantar erythrodysaesthesia syndrome [Recovered/Resolved]
  - Feeling abnormal [Recovered/Resolved]

NARRATIVE: CASE EVENT DATE: 2017
